FAERS Safety Report 5826476-0 (Version None)
Quarter: 2008Q3

REPORT INFORMATION
  Report Type: 
  Country: None (occurrence: None)
  Receive Date: 20080724
  Receipt Date: 20080708
  Transmission Date: 20090109
  Serious: Yes (Hospitalization)
  Sender: FDA-Public Use
  Company Number: DSA_62191_2008

PATIENT
  Sex: Female
  Weight: 43.9989 kg

DRUGS (4)
  1. DIASTAT [Suspect]
     Indication: EPILEPSY
     Dosage: 10 MG PRN RECTAL
     Route: 054
     Dates: start: 19990601
  2. TEGRETOL [Concomitant]
  3. DEPAKOTE [Concomitant]
  4. LAMICTAL [Concomitant]

REACTIONS (3)
  - CONVULSION [None]
  - DEVICE FAILURE [None]
  - DRUG INEFFECTIVE [None]
